FAERS Safety Report 5557934-4 (Version None)
Quarter: 2007Q4

REPORT INFORMATION
  Report Type: 
  Country: None (occurrence: None)
  Receive Date: 20071214
  Receipt Date: 20071204
  Transmission Date: 20080405
  Serious: Yes (Other)
  Sender: FDA-Public Use
  Company Number: JP-ELI_LILLY_AND_COMPANY-JP200712001642

PATIENT
  Age: 70 Year
  Sex: Male

DRUGS (4)
  1. GEMZAR [Suspect]
     Indication: BILE DUCT CANCER
     Dosage: 1200 MG, OTHER
     Route: 013
     Dates: start: 20060223, end: 20060223
  2. GEMZAR [Suspect]
     Dosage: 1200 MG, OTHER
     Route: 013
     Dates: start: 20060309, end: 20060309
  3. FLUOROURACIL [Concomitant]
     Indication: BILE DUCT CANCER
     Dosage: 450 MG, OTHER
     Route: 013
     Dates: start: 20060223, end: 20060227
  4. FLUOROURACIL [Concomitant]
     Dosage: 450 MG, DAILY (1/D)
     Route: 013
     Dates: start: 20060309, end: 20060313

REACTIONS (2)
  - ANOREXIA [None]
  - LIVER ABSCESS [None]
